FAERS Safety Report 23721851 (Version 1)
Quarter: 2024Q2

REPORT INFORMATION
  Report Type: Spontaneous
  Country: US (occurrence: US)
  Receive Date: 20240409
  Receipt Date: 20240409
  Transmission Date: 20240716
  Serious: Yes (Other)
  Sender: FDA-Public Use
  Company Number: US-MACLEODS PHARMA EU LTD-MAC2024046762

PATIENT

DRUGS (11)
  1. PYRAZINAMIDE [Suspect]
     Active Substance: PYRAZINAMIDE
     Indication: Tuberculosis
     Dosage: UNK UNK, QD
     Route: 065
  2. ISONIAZID [Suspect]
     Active Substance: ISONIAZID
     Indication: Tuberculosis
     Dosage: UNK, QD
     Route: 065
  3. RIFAMPIN [Suspect]
     Active Substance: RIFAMPIN
     Indication: Tuberculosis
     Dosage: UNK UNK, QD
     Route: 065
  4. LINEZOLID [Suspect]
     Active Substance: LINEZOLID
     Indication: Tuberculosis
     Dosage: 600 MILLIGRAM, QD
     Route: 048
  5. LINEZOLID [Suspect]
     Active Substance: LINEZOLID
     Dosage: 600 MILLIGRAM (3 TIMES A WEEK)
     Route: 048
  6. AMIKACIN [Suspect]
     Active Substance: AMIKACIN
     Indication: Tuberculosis
     Dosage: UNK (3 TIMES PER WEEK)
     Route: 042
  7. AMIKACIN [Suspect]
     Active Substance: AMIKACIN
     Dosage: UNK (2 TIMES PER WEEK)
     Route: 042
  8. CYCLOSERINE [Suspect]
     Active Substance: CYCLOSERINE
     Indication: Tuberculosis
     Dosage: UNK UNK, QD
     Route: 048
  9. ETHAMBUTOL [Concomitant]
     Active Substance: ETHAMBUTOL HYDROCHLORIDE
     Indication: Tuberculosis
     Dosage: UNK, QD
     Route: 048
  10. LEVOFLOXACIN [Concomitant]
     Active Substance: LEVOFLOXACIN
     Indication: Tuberculosis
     Dosage: UNK UNK, QD
     Route: 048
  11. CLOFAZIMINE [Concomitant]
     Active Substance: CLOFAZIMINE
     Indication: Tuberculosis
     Dosage: UNK UNK, QD
     Route: 048

REACTIONS (6)
  - Renal injury [Unknown]
  - Depressive symptom [Unknown]
  - Multiple-drug resistance [Unknown]
  - Tinnitus [Recovered/Resolved]
  - Alanine aminotransferase increased [Unknown]
  - Platelet count decreased [Unknown]
